FAERS Safety Report 7226789-4 (Version None)
Quarter: 2011Q1

REPORT INFORMATION
  Report Type: 
  Country: None (occurrence: None)
  Receive Date: 20110114
  Receipt Date: 20110110
  Transmission Date: 20110831
  Serious: Yes (Death, Hospitalization, Other)
  Sender: FDA-Public Use
  Company Number: DE-SANOFI-AVENTIS-2010SA023358

PATIENT
  Age: 63 Year
  Sex: Female
  Weight: 53 kg

DRUGS (6)
  1. CORTICOSTEROIDS [Concomitant]
     Route: 065
  2. TAXOTERE [Suspect]
     Indication: BREAST CANCER
     Route: 041
     Dates: start: 20100412, end: 20100412
  3. TAXOTERE [Suspect]
     Route: 041
     Dates: start: 20100208, end: 20100208
  4. BEVACIZUMAB [Suspect]
     Indication: BREAST CANCER
     Dosage: 840 MG TOTAL PER ADMINISTRATION
     Route: 041
     Dates: start: 20100412, end: 20100412
  5. ANTIEMETICS AND ANTINAUSEANTS [Concomitant]
     Route: 065
  6. BEVACIZUMAB [Suspect]
     Dosage: 840 MG TOTAL PER ADMINISTRATION
     Route: 041
     Dates: start: 20100208, end: 20100208

REACTIONS (5)
  - CONSTIPATION [None]
  - INTESTINAL PERFORATION [None]
  - HAEMOGLOBIN DECREASED [None]
  - DEATH [None]
  - PAIN [None]
